FAERS Safety Report 7658155-1 (Version None)
Quarter: 2011Q3

REPORT INFORMATION
  Report Type: 
  Country: None (occurrence: None)
  Receive Date: 20110805
  Receipt Date: 20110727
  Transmission Date: 20111222
  Serious: Yes (Hospitalization, Other)
  Sender: FDA-Public Use
  Company Number: JP-JNJFOC-20110705815

PATIENT
  Sex: Female
  Weight: 104 kg

DRUGS (9)
  1. INVEGA [Suspect]
     Route: 048
     Dates: start: 20110127
  2. EVAMYL [Concomitant]
     Indication: INITIAL INSOMNIA
     Route: 048
     Dates: start: 20101009
  3. ZYPREXA [Concomitant]
     Route: 048
     Dates: start: 20080301, end: 20080301
  4. RISPERDAL [Suspect]
     Indication: PRODUCT USED FOR UNKNOWN INDICATION
     Route: 048
     Dates: start: 20101005, end: 20110127
  5. ABILIFY [Concomitant]
     Route: 048
     Dates: start: 20071001, end: 20080301
  6. RISPERDAL [Suspect]
     Route: 048
     Dates: start: 20080301, end: 20100101
  7. EPADEL S [Concomitant]
     Indication: DYSLIPIDAEMIA
     Route: 048
     Dates: start: 20110707
  8. INVEGA [Suspect]
     Indication: SCHIZOPHRENIA
     Route: 048
     Dates: start: 20110120, end: 20110127
  9. RISPERDAL [Suspect]
     Route: 048
     Dates: start: 20040301, end: 20080201

REACTIONS (3)
  - BREAST CANCER [None]
  - BREAST CANCER FEMALE [None]
  - HYPERPROLACTINAEMIA [None]
